FAERS Safety Report 10221072 (Version 1)
Quarter: 2014Q2

REPORT INFORMATION
  Report Type: Spontaneous
  Country: US (occurrence: None)
  Receive Date: 20140605
  Receipt Date: 20140605
  Transmission Date: 20141212
  Serious: Yes (Other)
  Sender: FDA-Public Use
  Company Number: None

PATIENT
  Age: 59 Year
  Sex: Female
  Weight: 62 kg

DRUGS (11)
  1. TECFIDERA [Suspect]
     Indication: MULTIPLE SCLEROSIS
     Route: 048
     Dates: start: 20140106, end: 20140124
  2. CENTRUM SILVER [Concomitant]
  3. FIBER COMPLETE [Concomitant]
  4. PRAVASTATIN [Concomitant]
  5. SERTRALINE [Concomitant]
  6. AMITRIPTYLINE [Concomitant]
  7. MUCINEX [Concomitant]
  8. BUTALBITAL-APAP-CAFFEINE [Concomitant]
  9. BACLOFEN [Concomitant]
  10. MELOXICAM [Concomitant]
  11. METOPROLOL TARTRATE [Concomitant]

REACTIONS (10)
  - Pyrexia [None]
  - Fall [None]
  - Dysarthria [None]
  - Dysphemia [None]
  - Productive cough [None]
  - Pollakiuria [None]
  - Headache [None]
  - Mental status changes [None]
  - Encephalitis [None]
  - Viral infection [None]
